FAERS Safety Report 5864026-3 (Version None)
Quarter: 2008Q3

REPORT INFORMATION
  Report Type: 
  Country: None (occurrence: None)
  Receive Date: 20080829
  Receipt Date: 20080821
  Transmission Date: 20090109
  Serious: Yes (Other)
  Sender: FDA-Public Use
  Company Number: CA-ASTRAZENECA-2008UW17292

PATIENT
  Age: 70 Year
  Sex: Female

DRUGS (6)
  1. ARIMIDEX [Suspect]
     Indication: BREAST CANCER METASTATIC
     Route: 048
     Dates: start: 20080101
  2. ARIMIDEX [Suspect]
     Dosage: DISCONTINUED FOR 1 WEEK DUE TO RASH ON FACE
     Route: 048
  3. ARISTOCORT [Concomitant]
  4. PREDNISONE TAB [Concomitant]
  5. FAMCICLOVIR [Concomitant]
  6. FOSAMAX [Concomitant]

REACTIONS (4)
  - FACIAL PALSY [None]
  - HEADACHE [None]
  - RASH [None]
  - SPEECH DISORDER [None]
